FAERS Safety Report 21157377 (Version 1)
Quarter: 2022Q3

REPORT INFORMATION
  Report Type: Spontaneous
  Country: US (occurrence: US)
  Receive Date: 20220801
  Receipt Date: 20220801
  Transmission Date: 20221027
  Serious: Yes (Other)
  Sender: FDA-Public Use
  Company Number: US-MLMSERVICE-20220714-3676411-1

PATIENT
  Age: 1 Decade
  Sex: Female

DRUGS (1)
  1. IBUPROFEN [Suspect]
     Active Substance: IBUPROFEN
     Indication: Illness
     Dosage: UNK, UNK
     Route: 048

REACTIONS (1)
  - Aspirin-exacerbated respiratory disease [Recovering/Resolving]
